FAERS Safety Report 7003417-4 (Version None)
Quarter: 2010Q3

REPORT INFORMATION
  Report Type: 
  Country: None (occurrence: None)
  Receive Date: 20100920
  Receipt Date: 20100908
  Transmission Date: 20110219
  Serious: No
  Sender: FDA-Public Use
  Company Number: US-PFIZER INC-2010113844

PATIENT
  Sex: Female
  Weight: 81 kg

DRUGS (2)
  1. LYRICA [Suspect]
     Indication: FIBROMYALGIA
     Dosage: 150 MG, 2X/DAY
     Route: 048
     Dates: start: 20100101
  2. ATENOLOL [Concomitant]
     Indication: PALPITATIONS
     Dosage: 25 MG, AS NEEDED

REACTIONS (2)
  - OEDEMA PERIPHERAL [None]
  - PRURITUS [None]
